FAERS Safety Report 17685829 (Version 3)
Quarter: 2021Q4

REPORT INFORMATION
  Report Type: Spontaneous
  Country: CA (occurrence: CA)
  Receive Date: 20200420
  Receipt Date: 20211026
  Transmission Date: 20220304
  Serious: Yes (Death, Hospitalization, Other)
  Sender: FDA-Public Use
  Company Number: None

PATIENT
  Age: 55 Year
  Sex: Male
  Weight: 100 kg

DRUGS (13)
  1. SANDOSTATIN LAR DEPOT [Suspect]
     Active Substance: OCTREOTIDE ACETATE
     Indication: Carcinoid tumour
     Dosage: 30 MG, QMO
     Route: 030
  2. SANDOSTATIN LAR DEPOT [Suspect]
     Active Substance: OCTREOTIDE ACETATE
     Dosage: 30 MG, QMO
     Route: 030
  3. SANDOSTATIN LAR DEPOT [Suspect]
     Active Substance: OCTREOTIDE ACETATE
  4. KETOROLAC TROMETHAMINE [Suspect]
     Active Substance: KETOROLAC TROMETHAMINE
     Indication: Product used for unknown indication
     Dosage: UNK
     Route: 065
  5. MORPHINE SULFATE [Suspect]
     Active Substance: MORPHINE SULFATE
     Indication: Product used for unknown indication
     Dosage: UNK
     Route: 065
  6. AMLODIPINE BESYLATE [Suspect]
     Active Substance: AMLODIPINE BESYLATE
     Indication: Blood pressure abnormal
     Dosage: 10 MG, QD
     Route: 065
  7. AMLODIPINE BESYLATE [Suspect]
     Active Substance: AMLODIPINE BESYLATE
     Dosage: 10 MG, QD
     Route: 065
  8. INSULIN NOS [Concomitant]
     Active Substance: INSULIN NOS
     Indication: Product used for unknown indication
     Dosage: BID
     Route: 065
  9. ALTACE [Concomitant]
     Active Substance: RAMIPRIL
     Indication: Product used for unknown indication
     Dosage: QD
     Route: 065
  10. ASPIRIN [Concomitant]
     Active Substance: ASPIRIN
     Indication: Prophylaxis
     Dosage: 81 MG, QD
     Route: 048
  11. ASPIRIN [Concomitant]
     Active Substance: ASPIRIN
     Dosage: UNK
     Route: 048
  12. LANTUS [Concomitant]
     Active Substance: INSULIN GLARGINE
     Indication: Product used for unknown indication
     Dosage: UNK UNK, QD
     Route: 058
  13. ROSUVASTATIN CALCIUM [Concomitant]
     Active Substance: ROSUVASTATIN CALCIUM
     Indication: Product used for unknown indication
     Dosage: QD
     Route: 065

REACTIONS (35)
  - Biliary obstruction [Fatal]
  - Blood pressure diastolic decreased [Fatal]
  - Blood pressure fluctuation [Fatal]
  - Blood pressure increased [Fatal]
  - Blood pressure systolic increased [Fatal]
  - Body temperature decreased [Fatal]
  - Bronchitis [Fatal]
  - Chills [Fatal]
  - Diabetes mellitus [Fatal]
  - Discomfort [Fatal]
  - Hepatic neoplasm [Fatal]
  - Malaise [Fatal]
  - Ocular icterus [Fatal]
  - Orthostatic hypotension [Fatal]
  - Pain [Fatal]
  - Post procedural complication [Fatal]
  - Tremor [Fatal]
  - Yellow skin [Fatal]
  - Weight decreased [Fatal]
  - Nausea [Fatal]
  - Jaundice [Fatal]
  - Decreased appetite [Fatal]
  - Blood glucose decreased [Fatal]
  - Heart rate decreased [Fatal]
  - Aspiration [Fatal]
  - Asthenia [Fatal]
  - Diarrhoea [Fatal]
  - General physical health deterioration [Fatal]
  - Abdominal pain [Fatal]
  - Drug hypersensitivity [Fatal]
  - Vomiting [Fatal]
  - Eating disorder [Fatal]
  - Device occlusion [Fatal]
  - Needle issue [Fatal]
  - Incorrect dose administered [Fatal]
